FAERS Safety Report 20834901 (Version 1)
Quarter: 2022Q2

REPORT INFORMATION
  Report Type: 
  Country: None (occurrence: None)
  Receive Date: 20220516
  Receipt Date: 20220516
  Transmission Date: 20220720
  Serious: No
  Sender: FDA-Public Use
  Company Number: CA-ROCHE-3091749

PATIENT
  Weight: 97 kg

DRUGS (58)
  1. ACTEMRA [Suspect]
     Active Substance: TOCILIZUMAB
     Dosage: DRUG DOSE FIRST ADMINISTERED IS NOT PROVIDED
  2. SULFAMETHOXAZOLE\TRIMETHOPRIM [Suspect]
     Active Substance: SULFAMETHOXAZOLE\TRIMETHOPRIM
     Dosage: DRUG DOSE FIRST ADMINISTERED IS NOT PROVIDED
  3. RITUXIMAB [Suspect]
     Active Substance: RITUXIMAB
     Dosage: DRUG DOSE FIRST ADMINISTERED IS NOT PROVIDED
  4. ACTEMRA [Suspect]
     Active Substance: TOCILIZUMAB
  5. ACTEMRA [Suspect]
     Active Substance: TOCILIZUMAB
  6. ACTEMRA [Suspect]
     Active Substance: TOCILIZUMAB
  7. ACTEMRA [Suspect]
     Active Substance: TOCILIZUMAB
  8. ARAVA [Suspect]
     Active Substance: LEFLUNOMIDE
  9. PERIOGARD [Suspect]
     Active Substance: CHLORHEXIDINE GLUCONATE
  10. ACETAMINOPHEN [Suspect]
     Active Substance: ACETAMINOPHEN
  11. SULFASALAZINE [Suspect]
     Active Substance: SULFASALAZINE
  12. SULFASALAZINE [Suspect]
     Active Substance: SULFASALAZINE
  13. FOSAMAX [Suspect]
     Active Substance: ALENDRONATE SODIUM
  14. REMICADE [Suspect]
     Active Substance: INFLIXIMAB
  15. CETIRIZINE HYDROCHLORIDE [Suspect]
     Active Substance: CETIRIZINE HYDROCHLORIDE
  16. PREDNISONE [Suspect]
     Active Substance: PREDNISONE
  17. PSEUDOEPHEDRINE HYDROCHLORIDE [Suspect]
     Active Substance: PSEUDOEPHEDRINE HYDROCHLORIDE
  18. SIMPONI [Suspect]
     Active Substance: GOLIMUMAB
  19. OXYCODONE AND ACETAMINOPHEN [Suspect]
     Active Substance: ACETAMINOPHEN\OXYCODONE HYDROCHLORIDE
  20. CORTISONE [Suspect]
     Active Substance: CORTISONE
  21. DESOXIMETASONE [Suspect]
     Active Substance: DESOXIMETASONE
  22. DESOXIMETASONE [Suspect]
     Active Substance: DESOXIMETASONE
  23. CHLORHEXIDINE [Suspect]
     Active Substance: CHLORHEXIDINE
  24. FOLIC ACID [Suspect]
     Active Substance: FOLIC ACID
  25. FOLIC ACID [Suspect]
     Active Substance: FOLIC ACID
  26. XELJANZ [Suspect]
     Active Substance: TOFACITINIB CITRATE
  27. XELJANZ [Suspect]
     Active Substance: TOFACITINIB CITRATE
  28. CIMZIA [Suspect]
     Active Substance: CERTOLIZUMAB PEGOL
  29. ORENCIA [Suspect]
     Active Substance: ABATACEPT
  30. LEFLUNOMIDE [Suspect]
     Active Substance: LEFLUNOMIDE
  31. PREDNISONE [Suspect]
     Active Substance: PREDNISONE
  32. METHOTREXATE [Suspect]
     Active Substance: METHOTREXATE
  33. METHOTREXATE [Suspect]
     Active Substance: METHOTREXATE
  34. METHOTREXATE [Suspect]
     Active Substance: METHOTREXATE
  35. METHOTREXATE [Suspect]
     Active Substance: METHOTREXATE
  36. METHOTREXATE [Suspect]
     Active Substance: METHOTREXATE
  37. HYDROXYCHLOROQUINE [Suspect]
     Active Substance: HYDROXYCHLOROQUINE
  38. PLAQUENIL [Suspect]
     Active Substance: HYDROXYCHLOROQUINE SULFATE
  39. HYDROXYCHLOROQUINE SULFATE [Suspect]
     Active Substance: HYDROXYCHLOROQUINE SULFATE
  40. OXYCODONE TEREPHTHALATE [Suspect]
     Active Substance: OXYCODONE TEREPHTHALATE
  41. CHLORHEXIDINE GLUCONATE [Suspect]
     Active Substance: CHLORHEXIDINE GLUCONATE
  42. CHLORHEXIDINE GLUCONATE [Suspect]
     Active Substance: CHLORHEXIDINE GLUCONATE
  43. SULFAMETHOXAZOLE [Suspect]
     Active Substance: SULFAMETHOXAZOLE
  44. SULFAMETHOXAZOLE [Suspect]
     Active Substance: SULFAMETHOXAZOLE
  45. ENBREL [Suspect]
     Active Substance: ETANERCEPT
  46. ENBREL [Suspect]
     Active Substance: ETANERCEPT
  47. OXYCODONE [Suspect]
     Active Substance: OXYCODONE
  48. OXYCODONE [Suspect]
     Active Substance: OXYCODONE
  49. DICLOFENAC [Suspect]
     Active Substance: DICLOFENAC
  50. HUMIRA [Suspect]
     Active Substance: ADALIMUMAB
  51. DESOXIMETASONE [Suspect]
     Active Substance: DESOXIMETASONE
  52. IBUPROFEN [Suspect]
     Active Substance: IBUPROFEN
  53. TYLENOL WITH CODEINE [Concomitant]
     Active Substance: ACETAMINOPHEN\CODEINE PHOSPHATE
  54. SULFASALAZINE [Concomitant]
     Active Substance: SULFASALAZINE
  55. TYLENOL [Concomitant]
     Active Substance: ACETAMINOPHEN
  56. PANTOPRAZOLE SODIUM [Concomitant]
     Active Substance: PANTOPRAZOLE SODIUM
  57. PANTOPRAZOLE [Concomitant]
     Active Substance: PANTOPRAZOLE
  58. DESOGESTREL\ETHINYL ESTRADIOL [Concomitant]
     Active Substance: DESOGESTREL\ETHINYL ESTRADIOL

REACTIONS (45)
  - Swelling [None]
  - Systemic lupus erythematosus [None]
  - Impaired healing [None]
  - Confusional state [None]
  - Hypersensitivity [None]
  - Synovitis [None]
  - Hand deformity [None]
  - Drug intolerance [None]
  - Abdominal discomfort [None]
  - Nasopharyngitis [None]
  - Wound [None]
  - Sleep disorder due to general medical condition, insomnia type [None]
  - Anti-cyclic citrullinated peptide antibody positive [None]
  - Gastrointestinal disorder [None]
  - Joint swelling [None]
  - Stomatitis [None]
  - Pruritus [None]
  - Folliculitis [None]
  - Irritable bowel syndrome [None]
  - Lower respiratory tract infection [None]
  - Helicobacter infection [None]
  - Fatigue [None]
  - Weight increased [None]
  - Infection [None]
  - Maternal exposure during pregnancy [None]
  - Drug ineffective [None]
  - Contraindicated product administered [None]
  - Muscle injury [None]
  - Pain [None]
  - Pemphigus [None]
  - Therapeutic product effect decreased [None]
  - Pericarditis [None]
  - Peripheral swelling [None]
  - Sinusitis [None]
  - Arthropathy [None]
  - Blister [None]
  - Duodenal ulcer perforation [None]
  - Hepatic enzyme increased [None]
  - Alopecia [None]
  - Pyrexia [None]
  - Arthralgia [None]
  - Discomfort [None]
  - Infusion related reaction [None]
  - Glossodynia [None]
  - Dyspnoea [None]
